FAERS Safety Report 7251692-3 (Version None)
Quarter: 2011Q1

REPORT INFORMATION
  Report Type: 
  Country: None (occurrence: None)
  Receive Date: 20110128
  Receipt Date: 20110117
  Transmission Date: 20110831
  Serious: Yes (Hospitalization)
  Sender: FDA-Public Use
  Company Number: CH-ELI_LILLY_AND_COMPANY-CH201101004450

PATIENT
  Sex: Female

DRUGS (4)
  1. CYMBALTA [Suspect]
     Dosage: 90 MG, DAILY (1/D)
  2. CYMBALTA [Suspect]
     Dosage: 90 MG, UNK
     Dates: start: 20090601
  3. CYMBALTA [Suspect]
     Dosage: 60 MG, DAILY (1/D)
  4. CYMBALTA [Suspect]
     Dosage: 120 MG, DAILY (1/D)

REACTIONS (5)
  - ADVERSE EVENT [None]
  - HOSPITALISATION [None]
  - REFLUX OESOPHAGITIS [None]
  - NAUSEA [None]
  - DRUG LEVEL INCREASED [None]
